FAERS Safety Report 7988518 (Version 6)
Quarter: 2013Q1

REPORT INFORMATION
  Report Type: Report from Study
  Country: US (occurrence: US)
  Receive Date: 20110613
  Receipt Date: 20130319
  Transmission Date: 20140127
  Serious: Yes (Hospitalization)
  Sender: FDA-Public Use
  Company Number: PHHO2011US09749

PATIENT
  Age: 47 Year
  Sex: Male
  Weight: 85.3 kg

DRUGS (14)
  1. CERTICAN [Suspect]
     Indication: RENAL TRANSPLANT
     Dosage: 1.5 MG, BID
     Route: 048
     Dates: start: 20110526, end: 20120604
  2. CERTICAN [Suspect]
     Dosage: 1.5 MG, BID
     Route: 048
     Dates: start: 20110623
  3. ACETYLSALICYLIC ACID [Suspect]
     Dosage: 81 MG
  4. APRESOLINE [Concomitant]
     Indication: HYPERTENSION
     Dosage: 100 MG, TID
     Dates: start: 20110613
  5. HYDROMORPHONE [Concomitant]
     Indication: PROPHYLAXIS
     Dosage: 0.2 MG/ML, UNK
     Dates: start: 20110614
  6. LEVAQUIN [Concomitant]
     Indication: INFECTION PROPHYLAXIS
     Dosage: 500 MG, UNK
     Dates: start: 20110615
  7. AMLODIPINE [Concomitant]
     Indication: HYPERTENSION
     Dosage: 5 MG, QD
     Route: 048
  8. CLONIDINE [Concomitant]
     Indication: HYPERTENSION
     Dosage: 0.2 MG, TID
     Route: 048
  9. INSULIN [Concomitant]
     Indication: DIABETES MELLITUS
     Dosage: 20 U AM, 50 U PM
  10. METOPROLOL TARTRATE [Concomitant]
     Indication: HYPERTENSION
     Dosage: 100 MG, Q8H
  11. CALCIUM CHLORIDE [Concomitant]
     Indication: HYPOCALCAEMIA
     Dosage: 1667 MG, UNK
     Dates: start: 20110615
  12. FUROSEMIDE [Concomitant]
     Indication: HYPERTENSION
     Dosage: 20 MG, QD
     Dates: start: 20110614
  13. CRESTOR [Concomitant]
     Indication: HYPERLIPIDAEMIA
     Dosage: 20 MG, UNK
     Route: 048
  14. CALCIUM ACETATE [Concomitant]
     Indication: RENAL FAILURE CHRONIC
     Dosage: 667 MG, TID
     Route: 048

REACTIONS (4)
  - Retroperitoneal haematoma [Recovered/Resolved]
  - Renal haemorrhage [Recovered/Resolved]
  - Renal aneurysm [Recovered/Resolved]
  - Arteriovenous fistula [Recovered/Resolved]
